FAERS Safety Report 10045777 (Version 1)
Quarter: 2014Q1

REPORT INFORMATION
  Report Type: Spontaneous
  Country: US (occurrence: US)
  Receive Date: 20140328
  Receipt Date: 20140328
  Transmission Date: 20141002
  Serious: No
  Sender: FDA-Public Use
  Company Number: US-B.I. PHARMACEUTICALS,INC./RIDGEFIELD-2014-BI-12983BP

PATIENT
  Sex: Female
  Weight: 42 kg

DRUGS (3)
  1. ZANTAC 150 (RANITIDINE HYDROCHLORIDE) [Suspect]
     Indication: GASTROOESOPHAGEAL REFLUX DISEASE
     Dosage: 150 MG
     Route: 048
     Dates: start: 20130322
  2. SUCRALFATE [Concomitant]
     Dosage: 4 G
     Route: 048
  3. MYLANTA [Concomitant]
     Route: 065

REACTIONS (2)
  - Abdominal pain upper [Recovered/Resolved]
  - Off label use [Unknown]
